FAERS Safety Report 5428577-8 (Version None)
Quarter: 2007Q3

REPORT INFORMATION
  Report Type: 
  Country: None (occurrence: None)
  Receive Date: 20070824
  Receipt Date: 20070813
  Transmission Date: 20080115
  Serious: Yes (Hospitalization)
  Sender: FDA-Public Use
  Company Number: 5905/E2B_00010046

PATIENT
  Age: 54 Year
  Sex: Male

DRUGS (8)
  1. METFORMIN [Suspect]
     Indication: TYPE 2 DIABETES MELLITUS
     Dosage: 2000 MG (1000 MG, 2 IN 1D)
     Dates: start: 20040601, end: 20051114
  2. METFORMIN [Suspect]
     Indication: TYPE 2 DIABETES MELLITUS
     Dosage: 2000 MG (1000 MG, 2 IN 1D)
     Dates: start: 20040601
  3. BLINDED STUDY MEDICATION [Suspect]
     Dates: start: 20051114, end: 20070109
  4. ASPIRIN [Concomitant]
  5. ACCUPRIL [Concomitant]
  6. LESCOL XR (FLUVASTATIN SODIUM) [Concomitant]
  7. ACETAMINOPHEN [Concomitant]
  8. CIALIS [Concomitant]

REACTIONS (8)
  - ABDOMINAL PAIN [None]
  - BILIARY TRACT DISORDER [None]
  - CORONARY ARTERY OCCLUSION [None]
  - DIABETES MELLITUS INADEQUATE CONTROL [None]
  - ELECTROCARDIOGRAM ABNORMAL [None]
  - LYMPHOMA [None]
  - PORTAL VEIN OCCLUSION [None]
  - SARCOIDOSIS [None]
